FAERS Safety Report 12966912 (Version 1)
Quarter: 2016Q4

REPORT INFORMATION
  Report Type: Spontaneous
  Country: US (occurrence: US)
  Receive Date: 20161121
  Receipt Date: 20161121
  Transmission Date: 20170207
  Serious: No
  Sender: FDA-Public Use
  Company Number: None

PATIENT
  Age: 45 Year
  Sex: Female

DRUGS (1)
  1. CAPECITABINE 500MG ACCORD [Suspect]
     Active Substance: CAPECITABINE
     Indication: BREAST CANCER
     Route: 048
     Dates: start: 20160502, end: 20161102

REACTIONS (3)
  - Abdominal pain upper [None]
  - Vomiting [None]
  - Unevaluable event [None]

NARRATIVE: CASE EVENT DATE: 20161102
